FAERS Safety Report 25230461 (Version 1)
Quarter: 2025Q2

REPORT INFORMATION
  Report Type: Spontaneous
  Country: US (occurrence: US)
  Receive Date: 20250423
  Receipt Date: 20250423
  Transmission Date: 20250717
  Serious: No
  Sender: SYMOGEN
  Company Number: US-PARTNER THERAPEUTICS-2024PTX04059

PATIENT
  Sex: Female

DRUGS (1)
  1. LEUKINE [Suspect]
     Active Substance: SARGRAMOSTIM

REACTIONS (1)
  - Malaise [Not Recovered/Not Resolved]
